FAERS Safety Report 10619398 (Version 1)
Quarter: 2014Q4

REPORT INFORMATION
  Report Type: Spontaneous
  Country: FR (occurrence: FR)
  Receive Date: 20141202
  Receipt Date: 20141202
  Transmission Date: 20150529
  Serious: Yes (Other)
  Sender: FDA-Public Use
  Company Number: FR-ABBVIE-14K-056-1312141-00

PATIENT
  Age: 42 Year
  Sex: Female

DRUGS (2)
  1. HUMIRA [Suspect]
     Active Substance: ADALIMUMAB
     Route: 065
     Dates: start: 20140602, end: 20140825
  2. HUMIRA [Suspect]
     Active Substance: ADALIMUMAB
     Indication: CROHN^S DISEASE
     Route: 065
     Dates: start: 20130925, end: 20140228

REACTIONS (9)
  - Paraesthesia [Unknown]
  - Intervertebral disc protrusion [Unknown]
  - Intervertebral disc disorder [Unknown]
  - Leukoencephalopathy [Unknown]
  - Inflammatory pain [Unknown]
  - Paraesthesia [Unknown]
  - Intestinal resection [Unknown]
  - Arthralgia [Unknown]
  - Functional gastrointestinal disorder [Unknown]

NARRATIVE: CASE EVENT DATE: 2014
